FAERS Safety Report 21493036 (Version 1)
Quarter: 2022Q4

REPORT INFORMATION
  Report Type: Report from Study
  Country: US (occurrence: US)
  Receive Date: 20221021
  Receipt Date: 20221021
  Transmission Date: 20230113
  Serious: Yes (Hospitalization)
  Sender: FDA-Public Use
  Company Number: US-BRISTOL-MYERS SQUIBB COMPANY-2022-123207

PATIENT
  Age: 65 Year
  Sex: Male
  Weight: 81.646 kg

DRUGS (1)
  1. REVLIMID [Suspect]
     Active Substance: LENALIDOMIDE
     Indication: Plasma cell myeloma
     Dosage: TAKE 1 CAPSULE DAILY ON DAYS 1 THROUGH 21 THE OFF FOR 7 DAYS
     Route: 065
     Dates: start: 20220923

REACTIONS (1)
  - Arthropathy [Unknown]
